FAERS Safety Report 7653799-5 (Version None)
Quarter: 2011Q3

REPORT INFORMATION
  Report Type: 
  Country: None (occurrence: None)
  Receive Date: 20110803
  Receipt Date: 20110729
  Transmission Date: 20111222
  Serious: Yes (Hospitalization)
  Sender: FDA-Public Use
  Company Number: IT-GLAXOSMITHKLINE-B0736787A

PATIENT
  Sex: Male

DRUGS (5)
  1. ARTROSILENE [Suspect]
     Indication: PAIN
     Dosage: 160MG PER DAY
     Route: 042
     Dates: start: 20110716, end: 20110719
  2. LYRICA [Suspect]
     Indication: NEURALGIA
     Dosage: 75MG PER DAY
     Route: 048
     Dates: start: 20110716, end: 20110719
  3. METFORAL [Concomitant]
     Indication: TYPE 2 DIABETES MELLITUS
     Dosage: 850MG PER DAY
     Route: 048
     Dates: start: 20110716, end: 20110719
  4. ZANTAC [Suspect]
     Indication: GASTRITIS
     Dosage: 50MG PER DAY
     Route: 042
     Dates: start: 20110716, end: 20110719
  5. CYMBALTA [Suspect]
     Indication: DIABETIC NEUROPATHY
     Dosage: 30MG PER DAY
     Route: 048
     Dates: start: 20110716, end: 20110719

REACTIONS (3)
  - URTICARIA [None]
  - ANGIOEDEMA [None]
  - HYPOTENSION [None]
